FAERS Safety Report 16129225 (Version 5)
Quarter: 2019Q4

REPORT INFORMATION
  Report Type: Spontaneous
  Country: US (occurrence: US)
  Receive Date: 20190328
  Receipt Date: 20191129
  Transmission Date: 20200122
  Serious: Yes (Hospitalization, Other)
  Sender: FDA-Public Use
  Company Number: PHEH2019US013753

PATIENT
  Sex: Female
  Weight: 62.59 kg

DRUGS (1)
  1. ZOFRAN [Suspect]
     Active Substance: ONDANSETRON HYDROCHLORIDE
     Indication: MORNING SICKNESS
     Dosage: 1 DF, Q8H
     Route: 048
     Dates: start: 20121221, end: 20130515

REACTIONS (17)
  - Sleep deficit [Unknown]
  - Uterine contractions during pregnancy [Unknown]
  - Injury [Unknown]
  - Nasopharyngitis [Unknown]
  - Oligohydramnios [Unknown]
  - Uterine atony [Unknown]
  - Maternal exposure during pregnancy [Unknown]
  - Hypoaesthesia [Unknown]
  - Emotional distress [Unknown]
  - Carpal tunnel syndrome [Unknown]
  - High risk pregnancy [Unknown]
  - Pain [Unknown]
  - Anaemia of pregnancy [Unknown]
  - Anxiety [Unknown]
  - Anhedonia [Unknown]
  - Headache [Unknown]
  - Product use in unapproved indication [Unknown]
